FAERS Safety Report 5824308-8 (Version None)
Quarter: 2008Q3

REPORT INFORMATION
  Report Type: 
  Country: None (occurrence: None)
  Receive Date: 20080728
  Receipt Date: 20080715
  Transmission Date: 20090109
  Serious: Yes (Death)
  Sender: FDA-Public Use
  Company Number: JP-PFIZER INC-2008059698

PATIENT
  Age: 53 Year
  Sex: Female

DRUGS (3)
  1. REVATIO [Suspect]
     Indication: PULMONARY HYPERTENSION
     Dosage: DAILY DOSE:40MG
     Route: 048
     Dates: start: 20080609, end: 20080622
  2. TRACLEER [Concomitant]
     Route: 048
  3. DORNER [Concomitant]
     Route: 048

REACTIONS (1)
  - DEATH [None]
